FAERS Safety Report 6647979-5 (Version None)
Quarter: 2010Q1

REPORT INFORMATION
  Report Type: 
  Country: None (occurrence: None)
  Receive Date: 20100319
  Receipt Date: 20100308
  Transmission Date: 20100710
  Serious: Yes (Other)
  Sender: FDA-Public Use
  Company Number: MC201000085

PATIENT

DRUGS (2)
  1. ANGIOMAX [Suspect]
     Indication: ANGIOPLASTY
     Dosage: 0.75MG/KG, BOLUS, INTRAVENOUS; 1.75 MG/KG, HR, INTRAVENOUS
     Route: 040
  2. ASPIRIN [Concomitant]

REACTIONS (11)
  - AMPUTATION [None]
  - ARTERIOVENOUS FISTULA [None]
  - CARDIAC FAILURE CONGESTIVE [None]
  - CEREBROVASCULAR ACCIDENT [None]
  - EMBOLISM [None]
  - HAEMORRHAGE [None]
  - OFF LABEL USE [None]
  - PLATELET COUNT DECREASED [None]
  - RENAL FAILURE ACUTE [None]
  - VASCULAR ACCESS COMPLICATION [None]
  - VASCULAR PSEUDOANEURYSM [None]
